FAERS Safety Report 15996480 (Version 1)
Quarter: 2019Q1

REPORT INFORMATION
  Report Type: Spontaneous
  Country: DE (occurrence: DE)
  Receive Date: 20190222
  Receipt Date: 20190222
  Transmission Date: 20190418
  Serious: Yes (Other)
  Sender: FDA-Public Use
  Company Number: DE-MALLINCKRODT-T201901770

PATIENT
  Age: 41 Year
  Sex: Male
  Weight: 84 kg

DRUGS (2)
  1. HEPARIN [Concomitant]
     Active Substance: HEPARIN SODIUM
     Indication: ANTICOAGULANT THERAPY
     Dosage: 15000 IU
     Route: 065
  2. UVADEX [Suspect]
     Active Substance: METHOXSALEN
     Indication: CHRONIC GRAFT VERSUS HOST DISEASE
     Dosage: UNK
     Route: 057
     Dates: start: 20140530, end: 20190108

REACTIONS (2)
  - Thrombosis [Unknown]
  - Product use in unapproved indication [Unknown]

NARRATIVE: CASE EVENT DATE: 2019
